FAERS Safety Report 11840078 (Version 7)
Quarter: 2016Q3

REPORT INFORMATION
  Report Type: Report from Study
  Country: CA (occurrence: CA)
  Receive Date: 20151216
  Receipt Date: 20160728
  Transmission Date: 20161109
  Serious: Yes (Life-Threatening, Other)
  Sender: FDA-Public Use
  Company Number: CA-ROCHE-1578083

PATIENT
  Age: 65 Year
  Sex: Male

DRUGS (10)
  1. PLAQUENIL [Concomitant]
     Active Substance: HYDROXYCHLOROQUINE SULFATE
  2. RAPAFLO [Concomitant]
     Active Substance: SILODOSIN
  3. METHOTREXATE. [Concomitant]
     Active Substance: METHOTREXATE
  4. TELMISARTAN. [Concomitant]
     Active Substance: TELMISARTAN
  5. ZANTAC [Concomitant]
     Active Substance: RANITIDINE HYDROCHLORIDE
  6. ACTEMRA [Suspect]
     Active Substance: TOCILIZUMAB
     Route: 042
     Dates: start: 20150609
  7. ACTEMRA [Suspect]
     Active Substance: TOCILIZUMAB
     Indication: RHEUMATOID ARTHRITIS
     Route: 042
     Dates: start: 20150512
  8. ACTEMRA [Suspect]
     Active Substance: TOCILIZUMAB
     Route: 042
     Dates: start: 20160506, end: 20160711
  9. SULPHASALAZINE [Concomitant]
     Active Substance: SULFASALAZINE
  10. NAPROXEN. [Concomitant]
     Active Substance: NAPROXEN

REACTIONS (14)
  - Haematoma [Unknown]
  - Hypotension [Unknown]
  - Blood pressure diastolic decreased [Unknown]
  - Oxygen saturation decreased [Unknown]
  - Pain in extremity [Unknown]
  - Joint swelling [Recovering/Resolving]
  - Bladder neoplasm [Not Recovered/Not Resolved]
  - Blood pressure fluctuation [Unknown]
  - Cerebrovascular accident [Unknown]
  - Arthralgia [Not Recovered/Not Resolved]
  - Pain [Unknown]
  - Drug ineffective [Unknown]
  - No adverse event [Unknown]
  - Blood urine present [Not Recovered/Not Resolved]

NARRATIVE: CASE EVENT DATE: 20150512
